FAERS Safety Report 16008728 (Version 1)
Quarter: 2019Q1

REPORT INFORMATION
  Report Type: Spontaneous
  Country: US (occurrence: US)
  Receive Date: 20190225
  Receipt Date: 20190225
  Transmission Date: 20190418
  Serious: No
  Sender: FDA-Public Use
  Company Number: US-TEVA-2019-US-1013528

PATIENT
  Age: 72 Year

DRUGS (1)
  1. ZOLPIDEM TARTRATE. [Suspect]
     Active Substance: ZOLPIDEM TARTRATE
     Indication: INSOMNIA
     Dates: start: 201902

REACTIONS (4)
  - Euphoric mood [Unknown]
  - Product substitution issue [Unknown]
  - Hangover [Unknown]
  - Nightmare [Unknown]

NARRATIVE: CASE EVENT DATE: 201902
